FAERS Safety Report 15131389 (Version 15)
Quarter: 2019Q2

REPORT INFORMATION
  Report Type: Report from Study
  Country: US (occurrence: US)
  Receive Date: 20180711
  Receipt Date: 20190424
  Transmission Date: 20190711
  Serious: Yes (Death, Hospitalization)
  Sender: FDA-Public Use
  Company Number: US-ACTELION-A-US2018-175174

PATIENT
  Age: 69 Year
  Sex: Male
  Weight: 61.68 kg

DRUGS (9)
  1. VELETRI [Suspect]
     Active Substance: EPOPROSTENOL
     Dosage: 16 NG/KG, PER MIN
     Route: 042
  2. VELETRI [Suspect]
     Active Substance: EPOPROSTENOL
     Dosage: 29 NG/KG, PER MIN
     Route: 042
  3. ADEMPAS [Suspect]
     Active Substance: RIOCIGUAT
     Indication: PRODUCT USED FOR UNKNOWN INDICATION
     Dosage: 1 MG, TID
     Route: 065
     Dates: start: 20180731
  4. OPSUMIT [Suspect]
     Active Substance: MACITENTAN
     Indication: PULMONARY ARTERIAL HYPERTENSION
     Dosage: 10 MG, QD
     Route: 048
     Dates: start: 20170818
  5. VELETRI [Suspect]
     Active Substance: EPOPROSTENOL
     Indication: PULMONARY ARTERIAL HYPERTENSION
     Dosage: 45 NG/KG, PER MIN
     Route: 042
  6. TYVASO [Concomitant]
     Active Substance: TREPROSTINIL
  7. VELETRI [Suspect]
     Active Substance: EPOPROSTENOL
     Dosage: 11 NG/KG, PER MIN
     Route: 042
  8. VELETRI [Suspect]
     Active Substance: EPOPROSTENOL
     Dosage: 50 NG/KG, PER MIN
     Route: 042
  9. ADEMPAS [Suspect]
     Active Substance: RIOCIGUAT
     Dosage: 0.5 MG, TID
     Route: 065

REACTIONS (46)
  - Therapy change [Unknown]
  - Aspiration pleural cavity [Unknown]
  - Headache [Unknown]
  - Oxygen consumption increased [Not Recovered/Not Resolved]
  - Nausea [Unknown]
  - Influenza [Unknown]
  - Pulmonary oedema [Unknown]
  - Fluid retention [Unknown]
  - Pain in jaw [Not Recovered/Not Resolved]
  - Flushing [Unknown]
  - Sinus congestion [Unknown]
  - Asthenia [Not Recovered/Not Resolved]
  - Respiratory failure [Unknown]
  - Somatic symptom disorder [Unknown]
  - Paraesthesia [Unknown]
  - Arthralgia [Unknown]
  - Irritability [Unknown]
  - Death [Fatal]
  - Food refusal [Unknown]
  - Malaise [Unknown]
  - Fatigue [Not Recovered/Not Resolved]
  - Nervousness [Not Recovered/Not Resolved]
  - Gastroenteritis viral [Unknown]
  - Cardiac dysfunction [Unknown]
  - Product dose omission [Unknown]
  - Oxygen saturation decreased [Unknown]
  - Neck pain [Not Recovered/Not Resolved]
  - Burning sensation [Unknown]
  - Pyrexia [Unknown]
  - Weight decreased [Unknown]
  - Diarrhoea [Unknown]
  - Pallor [Unknown]
  - Dyspnoea [Recovering/Resolving]
  - Myalgia [Unknown]
  - Condition aggravated [Unknown]
  - Herpes zoster [Unknown]
  - Pleural effusion [Unknown]
  - Heart rate increased [Unknown]
  - Respiratory distress [Unknown]
  - Anxiety [Unknown]
  - Pain in extremity [Unknown]
  - Paranasal sinus hyposecretion [Unknown]
  - Muscle spasms [Unknown]
  - Heart rate decreased [Unknown]
  - Decreased appetite [Unknown]
  - Dyspnoea exertional [Unknown]

NARRATIVE: CASE EVENT DATE: 20180629
